FAERS Safety Report 14213723 (Version 1)
Quarter: 2017Q4

REPORT INFORMATION
  Report Type: Spontaneous
  Country: JP (occurrence: JP)
  Receive Date: 20171122
  Receipt Date: 20171122
  Transmission Date: 20180321
  Serious: Yes (Death, Other)
  Sender: FDA-Public Use
  Company Number: JP-PFIZER INC-2017453602

PATIENT
  Age: 65 Year

DRUGS (6)
  1. VFEND [Suspect]
     Active Substance: VORICONAZOLE
     Dosage: 130 MG, 2X/DAY
     Route: 041
     Dates: start: 20171014, end: 20171019
  2. GASTER [Concomitant]
     Active Substance: FAMOTIDINE
     Indication: PNEUMONIA
     Dosage: 20 MG, 2X/DAY
     Route: 041
     Dates: start: 20171014, end: 20171021
  3. VFEND [Suspect]
     Active Substance: VORICONAZOLE
     Indication: BRONCHOPULMONARY ASPERGILLOSIS
     Dosage: 200 MG, 2X/DAY
     Route: 041
     Dates: start: 20171013, end: 20171013
  4. MEROPEN [Concomitant]
     Active Substance: MEROPENEM
     Indication: PNEUMONIA
     Dosage: 0.5 G, 3X/DAY
     Route: 041
     Dates: start: 20171014, end: 20171021
  5. UNASYN S [Concomitant]
     Active Substance: AMPICILLIN SODIUM\SULBACTAM SODIUM
     Indication: PNEUMONIA
     Dosage: 3 G, 3X/DAY
     Route: 041
     Dates: start: 20171007, end: 20171012
  6. CRAVIT [Concomitant]
     Active Substance: LEVOFLOXACIN
     Indication: PNEUMONIA
     Dosage: 500 MG, 1X/DAY
     Route: 041
     Dates: start: 20171001, end: 20171012

REACTIONS (3)
  - Dehydration [Unknown]
  - Liver function test abnormal [Fatal]
  - Renal impairment [Fatal]

NARRATIVE: CASE EVENT DATE: 20171018
